FAERS Safety Report 9204263 (Version 1)
Quarter: 2013Q2

REPORT INFORMATION
  Report Type: Spontaneous
  Country: JP (occurrence: JP)
  Receive Date: 20130401
  Receipt Date: 20130401
  Transmission Date: 20140414
  Serious: Yes (Life-Threatening, Hospitalization)
  Sender: FDA-Public Use
  Company Number: JP-BRACCO-006879

PATIENT
  Age: 69 Year
  Sex: Male
  Weight: 62 kg

DRUGS (5)
  1. IOPAMIRON [Suspect]
     Indication: ANGIOGRAM
     Dosage: AT 13:15
     Route: 013
     Dates: start: 20130305, end: 20130305
  2. PENTAGIN [Concomitant]
     Dates: start: 20130305, end: 20130305
  3. CISPLATIN [Concomitant]
     Dates: start: 20130122
  4. XYLOCAINE [Concomitant]
     Dates: start: 20130305, end: 20130305
  5. ATARAX-P [Concomitant]
     Dates: start: 20130305, end: 20130305

REACTIONS (2)
  - Anaphylactic shock [Recovered/Resolved with Sequelae]
  - Sick sinus syndrome [Unknown]
